FAERS Safety Report 10146403 (Version 1)
Quarter: 2014Q2

REPORT INFORMATION
  Report Type: Spontaneous
  Country: US (occurrence: None)
  Receive Date: 20140429
  Receipt Date: 20140429
  Transmission Date: 20141212
  Serious: Yes (Other)
  Sender: FDA-Public Use
  Company Number: US-ZYDUS-003139

PATIENT
  Sex: Male

DRUGS (1)
  1. BUPROPION (BUPROPION) [Suspect]

REACTIONS (4)
  - Drug abuse [None]
  - Convulsion [None]
  - Hallucination [None]
  - Incorrect route of drug administration [None]
